FAERS Safety Report 19402077 (Version 1)
Quarter: 2021Q2

REPORT INFORMATION
  Report Type: Report from Study
  Country: US (occurrence: US)
  Receive Date: 20210610
  Receipt Date: 20210610
  Transmission Date: 20210717
  Serious: Yes (Other)
  Sender: FDA-Public Use
  Company Number: US-HORIZON THERAPEUTICS-HZN-2021-002988

PATIENT

DRUGS (1)
  1. RAVICTI [Suspect]
     Active Substance: GLYCEROL PHENYLBUTYRATE
     Indication: AMINO ACID METABOLISM DISORDER
     Dosage: UNK
     Route: 065
     Dates: start: 20140702

REACTIONS (2)
  - Seizure [Recovering/Resolving]
  - Somnolence [Unknown]
